FAERS Safety Report 6384788-9 (Version None)
Quarter: 2009Q4

REPORT INFORMATION
  Report Type: 
  Country: None (occurrence: None)
  Receive Date: 20091001
  Receipt Date: 20090928
  Transmission Date: 20100525
  Serious: Yes (Hospitalization)
  Sender: FDA-Public Use
  Company Number: US-ROXANE LABORATORIES, INC.-2009-RO-00999RO

PATIENT
  Age: 69 Year
  Sex: Female
  Weight: 63 kg

DRUGS (8)
  1. FLECAINIDE ACETATE [Suspect]
     Indication: ATRIAL FIBRILLATION
     Dosage: 200 MG
  2. FLECAINIDE ACETATE [Suspect]
     Dosage: 100 MG
     Route: 048
  3. CARVEDILOL [Suspect]
     Dosage: 25 MG
  4. WARFARIN SODIUM [Suspect]
     Dosage: 2 MG
  5. FOLIC ACID [Suspect]
     Dosage: 1 MG
  6. LEVOTHYROXINE SODIUM [Suspect]
     Dosage: 100 MCG
  7. PANTOPRAZOLE SODIUM [Suspect]
     Dosage: 40 MG
  8. PAROXETINE [Suspect]
     Indication: MAJOR DEPRESSION
     Dosage: 40 MG

REACTIONS (3)
  - DELIRIUM [None]
  - DRUG INTERACTION [None]
  - DRUG TOXICITY [None]
